FAERS Safety Report 7957799-7 (Version None)
Quarter: 2011Q4

REPORT INFORMATION
  Report Type: 
  Country: None (occurrence: None)
  Receive Date: 20111205
  Receipt Date: 20111129
  Transmission Date: 20120403
  Serious: Yes (Other)
  Sender: FDA-Public Use
  Company Number: US-JNJFOC-20111008524

PATIENT
  Sex: Male
  Weight: 89.8 kg

DRUGS (34)
  1. NICOTROL [Suspect]
     Route: 045
     Dates: start: 20020101, end: 20030101
  2. NICOTROL [Suspect]
     Route: 045
     Dates: start: 20110401, end: 20110601
  3. PROTONIX [Concomitant]
     Indication: GASTROOESOPHAGEAL REFLUX DISEASE
     Route: 065
  4. NICOTROL [Suspect]
     Route: 045
     Dates: start: 20020101, end: 20030101
  5. NICOTROL [Suspect]
     Route: 045
     Dates: start: 20050101
  6. LOVAZA [Concomitant]
     Indication: BLOOD TRIGLYCERIDES ABNORMAL
     Route: 065
  7. ACETYLSALICYLIC ACID SRT [Concomitant]
     Indication: COAGULOPATHY
     Route: 065
  8. NICOTROL [Suspect]
     Route: 045
     Dates: start: 20110701
  9. NICOTROL [Suspect]
     Route: 045
     Dates: start: 20010101
  10. NICOTROL [Suspect]
     Route: 045
     Dates: start: 20110701
  11. TRICOR [Concomitant]
     Indication: BLOOD TRIGLYCERIDES ABNORMAL
     Route: 065
  12. NAPROXEN [Concomitant]
     Indication: TENDON RUPTURE
     Route: 065
  13. NICOTROL [Suspect]
     Route: 045
     Dates: start: 20050101
  14. NICOTROL [Suspect]
     Route: 045
     Dates: start: 20110401, end: 20110601
  15. NICOTROL [Suspect]
     Route: 045
     Dates: start: 20010101
  16. NICOTROL [Suspect]
     Route: 045
     Dates: start: 20110401, end: 20110601
  17. PERCOCET [Concomitant]
     Indication: TENDON RUPTURE
     Dosage: 1/4 TABLET
     Route: 048
  18. NICOTROL [Suspect]
     Route: 045
     Dates: start: 20110401, end: 20110601
  19. NICOTROL [Suspect]
     Route: 045
     Dates: start: 20110401, end: 20110601
  20. NICOTROL [Suspect]
     Route: 045
     Dates: start: 20010101
  21. NICOTROL [Suspect]
     Route: 045
     Dates: start: 20010101
  22. NICOTROL [Suspect]
     Indication: SMOKING CESSATION THERAPY
     Route: 045
     Dates: start: 20050101
  23. NICOTROL [Suspect]
     Route: 045
     Dates: start: 20010101
  24. NICOTROL [Suspect]
     Route: 045
     Dates: start: 20020101, end: 20030101
  25. NICOTROL [Suspect]
     Route: 045
     Dates: start: 20110701
  26. NICOTROL [Suspect]
     Route: 045
     Dates: start: 20020101, end: 20030101
  27. NICOTROL [Suspect]
     Route: 045
     Dates: start: 20110701
  28. NICOTROL [Suspect]
     Route: 045
     Dates: start: 20050101
  29. NICOTROL [Suspect]
     Route: 045
     Dates: start: 20050101
  30. SEROQUEL [Concomitant]
     Indication: BIPOLAR II DISORDER
     Route: 065
  31. NICOTROL [Suspect]
     Route: 045
     Dates: start: 20020101, end: 20030101
  32. NICOTROL [Suspect]
     Route: 045
     Dates: start: 20110701
  33. IMIPRAMINE HYDROCHLORIDE [Suspect]
     Indication: PRODUCT USED FOR UNKNOWN INDICATION
  34. KLONOPIN [Concomitant]
     Indication: BIPOLAR II DISORDER
     Route: 065

REACTIONS (8)
  - DYSPEPSIA [None]
  - CONFUSIONAL STATE [None]
  - BIPOLAR DISORDER [None]
  - CHRONIC OBSTRUCTIVE PULMONARY DISEASE [None]
  - CHEST DISCOMFORT [None]
  - URINARY TRACT OBSTRUCTION [None]
  - FATIGUE [None]
  - SOMNOLENCE [None]
